APPROVED DRUG PRODUCT: RANITIDINE HYDROCHLORIDE
Active Ingredient: RANITIDINE HYDROCHLORIDE
Strength: EQ 150MG BASE
Dosage Form/Route: TABLET;ORAL
Application: A076705 | Product #001 | TE Code: AB
Applicant: DR REDDYS LABORATORIES INC
Approved: Jul 27, 2005 | RLD: No | RS: No | Type: RX